FAERS Safety Report 5951750-7 (Version None)
Quarter: 2008Q4

REPORT INFORMATION
  Report Type: 
  Country: None (occurrence: None)
  Receive Date: 20081113
  Receipt Date: 20081105
  Transmission Date: 20090506
  Serious: Yes (Other)
  Sender: FDA-Public Use
  Company Number: JP-MERCK-0811USA00564

PATIENT
  Age: 63 Year
  Sex: Female

DRUGS (3)
  1. PEPCID [Suspect]
     Indication: GASTRIC ULCER
     Route: 048
     Dates: start: 20080530, end: 20080609
  2. MECOBALAMIN [Concomitant]
     Route: 048
     Dates: start: 20080530, end: 20080609
  3. TOCONIJUST [Concomitant]
     Route: 048
     Dates: start: 20080530, end: 20080609

REACTIONS (1)
  - SHOCK [None]
